FAERS Safety Report 4456713-9 (Version None)
Quarter: 2004Q3

REPORT INFORMATION
  Report Type: 
  Country: None (occurrence: None)
  Receive Date: 20040923
  Receipt Date: 20040916
  Transmission Date: 20050211
  Serious: Yes (Other)
  Sender: FDA-Public Use
  Company Number: 200412814EU

PATIENT
  Age: 71 Year
  Sex: Female

DRUGS (8)
  1. ARAVA [Suspect]
     Indication: RHEUMATOID ARTHRITIS
     Route: 048
     Dates: start: 20030801
  2. FOSAMAX [Concomitant]
     Route: 048
  3. DIAMOX [Concomitant]
     Indication: GLAUCOMA
     Route: 048
  4. ALDOZONE [Concomitant]
     Route: 048
  5. CELEBREX [Concomitant]
     Route: 048
  6. CALCIUM [Concomitant]
     Route: 048
  7. VITAMIN D3 [Concomitant]
     Route: 048
  8. ACETAMINOPHEN [Concomitant]
     Route: 048

REACTIONS (1)
  - HEPATIC NEOPLASM [None]
